FAERS Safety Report 25667525 (Version 9)
Quarter: 2025Q4

REPORT INFORMATION
  Report Type: Report from Study
  Country: US (occurrence: US)
  Receive Date: 20250811
  Receipt Date: 20251202
  Transmission Date: 20260117
  Serious: Yes (Other)
  Sender: NOVARTIS
  Company Number: US-002147023-NVSC2025US125221

PATIENT
  Age: 55 Year
  Sex: Male

DRUGS (1)
  1. KESIMPTA [Suspect]
     Active Substance: OFATUMUMAB
     Indication: Multiple sclerosis
     Dosage: 20 MG, QMO
     Route: 058
     Dates: start: 20250505

REACTIONS (11)
  - Multiple sclerosis [Unknown]
  - Memory impairment [Unknown]
  - Transient ischaemic attack [Unknown]
  - Multiple sclerosis relapse [Unknown]
  - Pollakiuria [Unknown]
  - Device use issue [Unknown]
  - Device malfunction [Unknown]
  - Needle issue [Unknown]
  - Device defective [Unknown]
  - Migraine [Unknown]
  - Product dose omission issue [Unknown]

NARRATIVE: CASE EVENT DATE: 20250505
